FAERS Safety Report 25244099 (Version 3)
Quarter: 2025Q2

REPORT INFORMATION
  Report Type: Spontaneous
  Country: DE (occurrence: DE)
  Receive Date: 20250428
  Receipt Date: 20250602
  Transmission Date: 20250717
  Serious: Yes (Other)
  Sender: NOVARTIS
  Company Number: DE-002147023-NVSC2025DE068239

PATIENT
  Sex: Female

DRUGS (2)
  1. LEQVIO [Suspect]
     Active Substance: INCLISIRAN SODIUM
     Indication: Hypercholesterolaemia
     Route: 065
     Dates: start: 20231030, end: 20250417
  2. LEQVIO [Suspect]
     Active Substance: INCLISIRAN SODIUM
     Route: 065

REACTIONS (19)
  - Liver abscess [Not Recovered/Not Resolved]
  - Adrenal mass [Not Recovered/Not Resolved]
  - Calcification metastatic [Not Recovered/Not Resolved]
  - Adrenal adenoma [Not Recovered/Not Resolved]
  - Pulmonary fibrosis [Unknown]
  - Osteochondrosis [Unknown]
  - Arteriosclerosis coronary artery [Not Recovered/Not Resolved]
  - Arteriosclerosis [Not Recovered/Not Resolved]
  - Mitral valve calcification [Unknown]
  - Cardiomegaly [Unknown]
  - Diverticulum intestinal [Unknown]
  - Spinal osteoarthritis [Unknown]
  - Spondylitis [Unknown]
  - Interspinous osteoarthritis [Unknown]
  - Haemoglobin abnormal [Unknown]
  - Blood glucose abnormal [Unknown]
  - Gamma-glutamyltransferase increased [Unknown]
  - Lung cyst [Unknown]
  - Liver function test increased [Unknown]

NARRATIVE: CASE EVENT DATE: 20240801
